FAERS Safety Report 13531153 (Version 1)
Quarter: 2017Q2

REPORT INFORMATION
  Report Type: Spontaneous
  Country: US (occurrence: US)
  Receive Date: 20170510
  Receipt Date: 20170510
  Transmission Date: 20170830
  Serious: No
  Sender: FDA-Public Use
  Company Number: US-ASTRAZENECA-2017SE47038

PATIENT
  Age: 355 Month
  Sex: Female
  Weight: 64.9 kg

DRUGS (3)
  1. SINGULAIR [Concomitant]
     Active Substance: MONTELUKAST SODIUM
     Indication: ASTHMA
     Dosage: AT NIGHT
     Route: 048
     Dates: start: 2009
  2. SYMBICORT [Suspect]
     Active Substance: BUDESONIDE\FORMOTEROL FUMARATE DIHYDRATE
     Indication: ASTHMA
     Dosage: 160/4.5 MCG 2 PUFFS TWICE A DAY
     Route: 055
     Dates: start: 2008
  3. IBUPROFEN. [Concomitant]
     Active Substance: IBUPROFEN
     Indication: CHEST DISCOMFORT
     Dosage: 400 MG, ONE TAB EVERY 6 HOURS AS NEEDED
     Route: 048
     Dates: start: 2009

REACTIONS (4)
  - Drug dose omission [Not Recovered/Not Resolved]
  - Intentional product misuse [Not Recovered/Not Resolved]
  - Device malfunction [Unknown]
  - Dyspnoea [Not Recovered/Not Resolved]

NARRATIVE: CASE EVENT DATE: 201704
